FAERS Safety Report 6275116-8 (Version None)
Quarter: 2009Q3

REPORT INFORMATION
  Report Type: 
  Country: None (occurrence: None)
  Receive Date: 20090721
  Receipt Date: 20090710
  Transmission Date: 20100115
  Serious: Yes (Hospitalization, Other)
  Sender: FDA-Public Use
  Company Number: PHHY2009GB28983

PATIENT

DRUGS (1)
  1. TRILEPTAL [Suspect]

REACTIONS (1)
  - EPILEPSY [None]
